FAERS Safety Report 6993046-0 (Version None)
Quarter: 2010Q3

REPORT INFORMATION
  Report Type: 
  Country: None (occurrence: None)
  Receive Date: 20100917
  Receipt Date: 20100624
  Transmission Date: 20110219
  Serious: No
  Sender: FDA-Public Use
  Company Number: US-ASTRAZENECA-2010SE29637

PATIENT
  Age: 22 Year
  Sex: Female

DRUGS (2)
  1. SEROQUEL [Suspect]
     Indication: ANXIETY
     Route: 048
     Dates: start: 20080101
  2. SEROQUEL [Suspect]
     Indication: SOMNOLENCE
     Route: 048
     Dates: start: 20080101

REACTIONS (5)
  - ADVERSE DRUG REACTION [None]
  - DRUG DOSE OMISSION [None]
  - DRY MOUTH [None]
  - HYPERHIDROSIS [None]
  - INSOMNIA [None]
